FAERS Safety Report 4943333-2 (Version None)
Quarter: 2006Q1

REPORT INFORMATION
  Report Type: 
  Country: None (occurrence: None)
  Receive Date: 20060309
  Receipt Date: 20060227
  Transmission Date: 20060701
  Serious: Yes (Other)
  Sender: FDA-Public Use
  Company Number: 2006030007

PATIENT
  Age: 18 Year
  Sex: Female
  Weight: 61.2356 kg

DRUGS (2)
  1. DEPO-PROVERA [Suspect]
     Indication: CONTRACEPTION
     Dosage: (LAST INJECTION INJECTION), INTRAMUSCULAR
     Route: 030
     Dates: start: 20050701, end: 20050701
  2. TRAMADOL HCL [Concomitant]

REACTIONS (4)
  - DRY SKIN [None]
  - INJECTION SITE REACTION [None]
  - INJECTION SITE SWELLING [None]
  - VEIN DISCOLOURATION [None]
